FAERS Safety Report 21281434 (Version 1)
Quarter: 2022Q3

REPORT INFORMATION
  Report Type: Spontaneous
  Country: US (occurrence: US)
  Receive Date: 20220901
  Receipt Date: 20220901
  Transmission Date: 20221027
  Serious: No
  Sender: FDA-Public Use
  Company Number: US-ALLERGAN-2204973US

PATIENT
  Sex: Male

DRUGS (1)
  1. SAPHRIS [Suspect]
     Active Substance: ASENAPINE MALEATE
     Indication: Product used for unknown indication

REACTIONS (2)
  - Cerebral disorder [Not Recovered/Not Resolved]
  - Disturbance in attention [Not Recovered/Not Resolved]
